FAERS Safety Report 8464712-5 (Version None)
Quarter: 2012Q2

REPORT INFORMATION
  Report Type: 
  Country: None (occurrence: None)
  Receive Date: 20120626
  Receipt Date: 20120621
  Transmission Date: 20120825
  Serious: No
  Sender: FDA-Public Use
  Company Number: US-PFIZER INC-2012150574

PATIENT
  Sex: Female
  Weight: 47.619 kg

DRUGS (2)
  1. EFFEXOR XR [Suspect]
     Dosage: 37.5 MG, DAILY
  2. ZOLOFT [Suspect]
     Dosage: 100 MG, DAILY

REACTIONS (4)
  - SENSATION OF FOREIGN BODY [None]
  - FLATULENCE [None]
  - DYSPEPSIA [None]
  - ERUCTATION [None]
